FAERS Safety Report 23046039 (Version 1)
Quarter: 2023Q4

REPORT INFORMATION
  Report Type: Spontaneous
  Country: CZ (occurrence: CZ)
  Receive Date: 20231009
  Receipt Date: 20231009
  Transmission Date: 20240110
  Serious: Yes (Other)
  Sender: FDA-Public Use
  Company Number: CZ-002147023-NVSC2023CZ217005

PATIENT

DRUGS (1)
  1. ALPELISIB [Suspect]
     Active Substance: ALPELISIB
     Indication: Vascular malformation
     Dosage: UNK UNK, QD
     Route: 048

REACTIONS (2)
  - Hyperglycaemia [Unknown]
  - Product use in unapproved indication [Unknown]
